FAERS Safety Report 17511931 (Version 2)
Quarter: 2020Q2

REPORT INFORMATION
  Report Type: Spontaneous
  Country: US (occurrence: US)
  Receive Date: 20200306
  Receipt Date: 20200424
  Transmission Date: 20200713
  Serious: Yes (Other)
  Sender: FDA-Public Use
  Company Number: US-PFIZER INC-2020101345

PATIENT
  Age: 62 Year
  Sex: Female

DRUGS (4)
  1. IBRANCE [Suspect]
     Active Substance: PALBOCICLIB
     Dosage: 75 MG, CYCLIC 21 DAYS ON, OFF 7 DAYS
     Route: 048
  2. IBRANCE [Suspect]
     Active Substance: PALBOCICLIB
     Dosage: 100 MG, CYCLIC 21 DAYS ON, 7 DAYS OFF
     Route: 048
     Dates: start: 202002
  3. IBRANCE [Suspect]
     Active Substance: PALBOCICLIB
     Indication: BREAST CANCER
     Dosage: 125 MG, CYCLIC 21 DAYS ON, 7 DAYS OFF
     Route: 048
     Dates: start: 202001
  4. ANASTROZOLE. [Concomitant]
     Active Substance: ANASTROZOLE

REACTIONS (6)
  - Dysuria [Unknown]
  - White blood cell count abnormal [Unknown]
  - Peripheral swelling [Unknown]
  - Fatigue [Unknown]
  - Neutropenia [Unknown]
  - Dizziness [Unknown]
